FAERS Safety Report 20963498 (Version 1)
Quarter: 2022Q2

REPORT INFORMATION
  Report Type: Spontaneous
  Country: US (occurrence: None)
  Receive Date: 20220615
  Receipt Date: 20220615
  Transmission Date: 20220721
  Serious: Yes (Life-Threatening, Hospitalization, Disabling)
  Sender: FDA-Public Use
  Company Number: None

PATIENT
  Age: 19 Year
  Sex: Female

DRUGS (1)
  1. HERBALS\MITRAGYNINE [Suspect]
     Active Substance: HERBALS\MITRAGYNINE

REACTIONS (12)
  - Dependence [None]
  - Dependence [None]
  - Overdose [None]
  - Withdrawal syndrome [None]
  - Drug dependence [None]
  - Loss of personal independence in daily activities [None]
  - Educational problem [None]
  - Personal relationship issue [None]
  - Drug tolerance [None]
  - Intentional product misuse [None]
  - Drug dependence [None]
  - Drug dependence [None]
